FAERS Safety Report 9796255 (Version 1)
Quarter: 2014Q1

REPORT INFORMATION
  Report Type: Spontaneous
  Country: US (occurrence: US)
  Receive Date: 20140103
  Receipt Date: 20140103
  Transmission Date: 20141002
  Serious: No
  Sender: FDA-Public Use
  Company Number: US-009507513-1401USA000690

PATIENT
  Age: 61 Year
  Sex: Female

DRUGS (6)
  1. CLARITIN-D [Suspect]
     Indication: PRODUCT USED FOR UNKNOWN INDICATION
     Dosage: UNK, UNKNOWN
     Route: 048
  2. CLARITIN-D [Suspect]
     Indication: COUGH
  3. CLARITIN-D [Suspect]
     Indication: INSOMNIA
  4. CLARITIN-D [Suspect]
     Indication: DYSPNOEA
  5. CLARITIN-D [Suspect]
     Indication: EYE PRURITUS
  6. CLARITIN-D [Suspect]
     Indication: LACRIMATION INCREASED

REACTIONS (3)
  - Dry skin [Unknown]
  - Dry mouth [Unknown]
  - Therapeutic response unexpected [Unknown]
